FAERS Safety Report 17806290 (Version 1)
Quarter: 2020Q2

REPORT INFORMATION
  Report Type: Spontaneous
  Country: US (occurrence: US)
  Receive Date: 20200520
  Receipt Date: 20200520
  Transmission Date: 20200714
  Serious: Yes (Other)
  Sender: FDA-Public Use
  Company Number: US-GLAXOSMITHKLINE-US2020084202

PATIENT
  Age: 65 Year
  Sex: Female

DRUGS (2)
  1. BREO ELLIPTA [Suspect]
     Active Substance: FLUTICASONE FUROATE\VILANTEROL TRIFENATATE
     Indication: CHRONIC OBSTRUCTIVE PULMONARY DISEASE
     Dosage: UNK UNK, QD
     Route: 065
  2. BREO ELLIPTA [Suspect]
     Active Substance: FLUTICASONE FUROATE\VILANTEROL TRIFENATATE
     Dosage: UNK, QOD

REACTIONS (11)
  - Exophthalmos [Unknown]
  - Wrong technique in device usage process [Unknown]
  - Heart rate increased [Unknown]
  - Wheezing [Unknown]
  - Expired product administered [Unknown]
  - Intentional product misuse [Unknown]
  - Ocular discomfort [Unknown]
  - Head discomfort [Unknown]
  - Cough [Unknown]
  - Headache [Unknown]
  - Intentional underdose [Unknown]

NARRATIVE: CASE EVENT DATE: 202005
